FAERS Safety Report 17416295 (Version 1)
Quarter: 2020Q1

REPORT INFORMATION
  Report Type: Report from Study
  Country: CA (occurrence: CA)
  Receive Date: 20200213
  Receipt Date: 20200213
  Transmission Date: 20200409
  Serious: Yes (Other)
  Sender: FDA-Public Use
  Company Number: CA-JNJFOC-20200113117

PATIENT
  Age: 59 Year
  Sex: Female
  Weight: 136 kg

DRUGS (2)
  1. REMICADE [Suspect]
     Active Substance: INFLIXIMAB
     Indication: CROHN^S DISEASE
     Route: 042
     Dates: start: 20190621
  2. REMICADE [Suspect]
     Active Substance: INFLIXIMAB
     Indication: COLITIS ULCERATIVE

REACTIONS (11)
  - Psoriasis [Unknown]
  - General physical health deterioration [Unknown]
  - Product use issue [Unknown]
  - Diarrhoea [Unknown]
  - Off label use [Unknown]
  - Frequent bowel movements [Unknown]
  - Tooth infection [Unknown]
  - Abdominal pain [Unknown]
  - Basal cell carcinoma [Unknown]
  - Abdominal pain [Unknown]
  - Abdominal distension [Unknown]

NARRATIVE: CASE EVENT DATE: 20190621
